FAERS Safety Report 23910637 (Version 2)
Quarter: 2024Q4

REPORT INFORMATION
  Report Type: Spontaneous
  Country: US (occurrence: US)
  Receive Date: 20240528
  Receipt Date: 20241125
  Transmission Date: 20250115
  Serious: No
  Sender: AVADEL CNS PHARMACEUTICALS, LLC
  Company Number: US-AVADEL CNS PHARMACEUTICALS, LLC-2024AVA00213

PATIENT
  Age: 45 Year
  Sex: Male
  Weight: 97.506 kg

DRUGS (6)
  1. LUMRYZ [Suspect]
     Active Substance: SODIUM OXYBATE
     Indication: Narcolepsy
     Dosage: 7.5 G, ONCE NIGHTLY
     Route: 048
  2. LUMRYZ [Suspect]
     Active Substance: SODIUM OXYBATE
     Indication: Cataplexy
  3. VENLAFAXINE [Concomitant]
     Active Substance: VENLAFAXINE HYDROCHLORIDE
     Dosage: TWO (150 MG), DAILY
  4. TOPIRAMATE [Concomitant]
     Active Substance: TOPIRAMATE
     Dosage: ONE TABLET (50 MG), 1X/DAY IN THE MORNING
  5. TOPIRAMATE [Concomitant]
     Active Substance: TOPIRAMATE
     Dosage: TWO TABLETS (100 MG), 1X/DAY AT NIGHT
  6. ADDERALL [Concomitant]
     Active Substance: AMPHETAMINE ASPARTATE\AMPHETAMINE SULFATE\DEXTROAMPHETAMINE SACCHARATE\DEXTROAMPHETAMINE SULFATE
     Dosage: HALF TABLET (10 MG) UP TO 1 TO 2 TABLETS A DAY, AS NEEDED

REACTIONS (6)
  - COVID-19 [Recovered/Resolved]
  - Gastroenteritis viral [Recovering/Resolving]
  - Diarrhoea [Recovering/Resolving]
  - Intentional dose omission [Unknown]
  - Product dose omission issue [Not Recovered/Not Resolved]
  - Wrong technique in product usage process [Unknown]

NARRATIVE: CASE EVENT DATE: 20240126
